FAERS Safety Report 20331171 (Version 2)
Quarter: 2022Q1

REPORT INFORMATION
  Report Type: Spontaneous
  Country: GB (occurrence: GB)
  Receive Date: 20220113
  Receipt Date: 20220124
  Transmission Date: 20220423
  Serious: Yes (Other)
  Sender: FDA-Public Use
  Company Number: None

PATIENT
  Sex: Male

DRUGS (2)
  1. SOTROVIMAB [Suspect]
     Active Substance: SOTROVIMAB
     Indication: COVID-19
     Dosage: UNK
     Route: 065
  2. BCG VACCINE [Concomitant]
     Active Substance: BCG VACCINE
     Indication: Bladder cancer
     Dosage: UNK
     Route: 043

REACTIONS (1)
  - Seizure [Recovered/Resolved]
